FAERS Safety Report 9994713 (Version 5)
Quarter: 2016Q1

REPORT INFORMATION
  Report Type: Spontaneous
  Country: CA (occurrence: CA)
  Receive Date: 20140311
  Receipt Date: 20160225
  Transmission Date: 20160526
  Serious: Yes (Death, Hospitalization, Other)
  Sender: FDA-Public Use
  Company Number: CA-SHIRE-CA201400366

PATIENT
  Age: 12 Year
  Sex: Male
  Weight: 48 kg

DRUGS (10)
  1. RISPERDAL [Suspect]
     Active Substance: RISPERIDONE
     Indication: PRODUCT USED FOR UNKNOWN INDICATION
     Dosage: 1.5 MG, 2X/DAY:BID
     Route: 065
     Dates: end: 20140302
  2. RISPERDAL [Suspect]
     Active Substance: RISPERIDONE
     Dosage: 2 MG, 1X/DAY:QD
     Route: 048
  3. ACETAMINOPHEN. [Concomitant]
     Active Substance: ACETAMINOPHEN
     Indication: PRODUCT USED FOR UNKNOWN INDICATION
     Dosage: 500 MG, UNKNOWN
     Route: 065
     Dates: end: 20140228
  4. MELATONIN [Concomitant]
     Active Substance: MELATONIN
     Indication: PRODUCT USED FOR UNKNOWN INDICATION
     Dosage: UNK (POSSIBLY 3 MG), UNKNOWN (DAILY)
     Route: 065
  5. INTUNIV [Suspect]
     Active Substance: GUANFACINE HYDROCHLORIDE
     Indication: ABNORMAL BEHAVIOUR
     Dosage: 1 MG, UNKNOWN
     Route: 048
     Dates: start: 20140226, end: 20140228
  6. RISPERDAL [Suspect]
     Active Substance: RISPERIDONE
     Dosage: 0.5 MG, UNKNOWN
     Route: 065
     Dates: end: 20140301
  7. INTUNIV [Suspect]
     Active Substance: GUANFACINE HYDROCHLORIDE
     Indication: ATTENTION DEFICIT/HYPERACTIVITY DISORDER
     Dosage: 1 MG, UNKNOWN
     Route: 048
     Dates: start: 20131128
  8. INTUNIV [Suspect]
     Active Substance: GUANFACINE HYDROCHLORIDE
     Indication: TIC
  9. LIDOCAINE. [Suspect]
     Active Substance: LIDOCAINE
     Indication: VENTRICULAR TACHYCARDIA
     Dosage: UNK, UNKNOWN
     Route: 065
     Dates: start: 20140306
  10. INTUNIV [Suspect]
     Active Substance: GUANFACINE HYDROCHLORIDE
     Indication: IMPULSIVE BEHAVIOUR

REACTIONS (18)
  - Dehydration [Unknown]
  - Influenza [Recovered/Resolved]
  - Apnoea [Unknown]
  - Seizure [Unknown]
  - Urinary incontinence [Unknown]
  - Nausea [Unknown]
  - Headache [Unknown]
  - Cardiac arrest [Fatal]
  - Ventricular tachycardia [Fatal]
  - Arthralgia [Recovered/Resolved]
  - Ataxia [Unknown]
  - Lactic acidosis [Unknown]
  - Syncope [Unknown]
  - Vomiting [Unknown]
  - Ventricular fibrillation [Unknown]
  - Torsade de pointes [Unknown]
  - Coordination abnormal [Unknown]
  - Tonsillitis [Unknown]

NARRATIVE: CASE EVENT DATE: 2014
